FAERS Safety Report 5564782-8 (Version None)
Quarter: 2007Q4

REPORT INFORMATION
  Report Type: 
  Country: None (occurrence: None)
  Receive Date: 20071212
  Receipt Date: 20071130
  Transmission Date: 20080405
  Serious: Yes (Other)
  Sender: FDA-Public Use
  Company Number: DSJ-2007-09758

PATIENT
  Age: 59 Year
  Sex: Male

DRUGS (3)
  1. SALIGREN(CAPSULE) [Suspect]
     Indication: APTYALISM
     Dosage: 90 MG (30 MG, 3 IN 1 D), PER ORAL
     Route: 048
     Dates: start: 20071016, end: 20071106
  2. FLUTIDE DISKUS(FLUTICASONE PROPIONATE) (INHALATION POWDER) (FLUTICASON [Concomitant]
  3. SALIVEHT [Concomitant]

REACTIONS (3)
  - ARTHRALGIA [None]
  - MUSCULOSKELETAL STIFFNESS [None]
  - PAIN [None]
